FAERS Safety Report 4277543-7 (Version None)
Quarter: 2004Q1

REPORT INFORMATION
  Report Type: 
  Country: None (occurrence: None)
  Receive Date: 20040121
  Receipt Date: 20040109
  Transmission Date: 20041129
  Serious: Yes (Hospitalization, Other)
  Sender: FDA-Public Use
  Company Number: 200115420BWH

PATIENT
  Age: 20 Year
  Sex: Female
  Weight: 32 kg

DRUGS (31)
  1. MOXIFLOXACIN (MOXIFLOXACIN) [Suspect]
     Indication: ABDOMINAL INFECTION
     Dosage: INTRAVENOUS
     Route: 042
     Dates: start: 20011112
  2. DEMEROL/CAN [Concomitant]
  3. TYLENOL [Concomitant]
  4. TORADOL [Concomitant]
  5. SODIUM CHLORIDE WITH D5W [Concomitant]
  6. ZOFRAN [Concomitant]
  7. RINGER-LAKTAT [Concomitant]
  8. FENTANYL [Concomitant]
  9. DIPRIVAN [Concomitant]
  10. NEOSTIGMINE [Concomitant]
  11. ROBINUL [Concomitant]
  12. VERSED [Concomitant]
  13. DECADRON [Concomitant]
  14. MAGNESIUM SULFATE [Concomitant]
  15. INAPSINE ^MCNEIL^ [Concomitant]
  16. PEPCID [Concomitant]
  17. LASIX [Concomitant]
  18. TIMENTIN [Concomitant]
  19. AMPICILLIN [Concomitant]
  20. CLINDAMYCIN [Concomitant]
  21. GENTAMICIN [Concomitant]
  22. TEQUIN [Concomitant]
  23. CEFOXITIN [Concomitant]
  24. DOXYCYCLINE [Concomitant]
  25. ETOMIDATE [Concomitant]
  26. NIMBEX [Concomitant]
  27. ZEMURON [Concomitant]
  28. DESFLORANE [Concomitant]
  29. PERCOCET [Concomitant]
  30. MORPHINE SULFATE [Concomitant]
  31. METOCLOPRAMIDE [Concomitant]

REACTIONS (17)
  - ACUTE RESPIRATORY DISTRESS SYNDROME [None]
  - AGITATION [None]
  - BACK PAIN [None]
  - BLOOD PHOSPHORUS DECREASED [None]
  - BRADYCARDIA [None]
  - DRUG HYPERSENSITIVITY [None]
  - HYPERGLYCAEMIA [None]
  - HYPOCALCAEMIA [None]
  - HYPOGLYCAEMIA [None]
  - HYPOMAGNESAEMIA [None]
  - LEUKOCYTOSIS [None]
  - OEDEMA [None]
  - PULMONARY OEDEMA [None]
  - RESPIRATORY ACIDOSIS [None]
  - RESPIRATORY DISORDER [None]
  - RESPIRATORY DISTRESS [None]
  - TACHYPNOEA [None]
